FAERS Safety Report 7758388-X (Version None)
Quarter: 2011Q3

REPORT INFORMATION
  Report Type: 
  Country: None (occurrence: None)
  Receive Date: 20110919
  Receipt Date: 20110913
  Transmission Date: 20111222
  Serious: Yes (Hospitalization)
  Sender: FDA-Public Use
  Company Number: US-PFIZER INC-2011216849

PATIENT
  Sex: Male
  Weight: 86.2 kg

DRUGS (1)
  1. NEURONTIN [Suspect]
     Indication: TACHYPHRENIA
     Dosage: 600 MG, 3X/DAY
     Dates: start: 20030101

REACTIONS (1)
  - PSYCHOTIC DISORDER [None]
